FAERS Safety Report 19855830 (Version 1)
Quarter: 2021Q3

REPORT INFORMATION
  Report Type: Spontaneous
  Country: US (occurrence: US)
  Receive Date: 20210920
  Receipt Date: 20210920
  Transmission Date: 20211014
  Serious: No
  Sender: FDA-Public Use
  Company Number: None

PATIENT
  Age: 72 Year
  Sex: Male
  Weight: 68.85 kg

DRUGS (16)
  1. PRILOSEC OTC 20MG [Concomitant]
  2. VITAMIN B12 ER 1000MCG [Concomitant]
  3. VITAMIN D 2000IU [Concomitant]
  4. NORCO 7.5?325MG [Concomitant]
  5. PROCHLORPERAZINE 10MG [Concomitant]
  6. TEMOZOLOMIDE 5MG [Concomitant]
     Active Substance: TEMOZOLOMIDE
  7. TEMOZOLOMIDE 100MG [Concomitant]
     Active Substance: TEMOZOLOMIDE
  8. IRON 90MG [Concomitant]
  9. GABAPENTIN 100MG [Concomitant]
     Active Substance: GABAPENTIN
  10. ONDANSETRON 8MG [Concomitant]
     Active Substance: ONDANSETRON
  11. CAPECITABINE. [Suspect]
     Active Substance: CAPECITABINE
     Indication: PANCREATIC CARCINOMA
     Dosage: ?          OTHER FREQUENCY:BID FOR 14/28 DAYS;?
     Route: 048
     Dates: start: 20210722
  12. TEMOZOLOMIDE 20MG [Concomitant]
     Active Substance: TEMOZOLOMIDE
  13. DOXYCYCLINE HYCLATE 100MG [Concomitant]
     Active Substance: DOXYCYCLINE HYCLATE
  14. TEMOZOLOMIDE. [Suspect]
     Active Substance: TEMOZOLOMIDE
     Indication: PANCREATIC CARCINOMA
     Dosage: ?          OTHER FREQUENCY:QD FOR 5/28 DAYS;?
     Route: 048
     Dates: start: 20210722
  15. LISINOPRIL. [Concomitant]
     Active Substance: LISINOPRIL
  16. SIMVASTATIN 10MG [Concomitant]
     Active Substance: SIMVASTATIN

REACTIONS (4)
  - Therapy interrupted [None]
  - Vomiting [None]
  - Diarrhoea [None]
  - Malaise [None]

NARRATIVE: CASE EVENT DATE: 20210920
